FAERS Safety Report 24578726 (Version 9)
Quarter: 2025Q4

REPORT INFORMATION
  Report Type: Report from Study
  Country: CA (occurrence: None)
  Receive Date: 20241105
  Receipt Date: 20251029
  Transmission Date: 20260118
  Serious: Yes (Hospitalization, Other)
  Sender: UCB
  Company Number: CA-UCBSA-2024048049

PATIENT
  Age: 78 Year

DRUGS (18)
  1. BIMEKIZUMAB [Suspect]
     Active Substance: BIMEKIZUMAB
     Indication: Psoriasis
     Dosage: 320 MILLIGRAM, EV 4 WEEKSX4
  2. BIMEKIZUMAB [Suspect]
     Active Substance: BIMEKIZUMAB
     Dosage: 320 MILLIGRAM, EV 8 WEEKS
  3. BIMEKIZUMAB [Suspect]
     Active Substance: BIMEKIZUMAB
     Dosage: 320 MILLIGRAM, EV 4 WEEKSX4
  4. BIMEKIZUMAB [Suspect]
     Active Substance: BIMEKIZUMAB
     Dosage: 320 MILLIGRAM, EV 8 WEEKS
  5. ISOSORBIDE MONONITRATE [Concomitant]
     Active Substance: ISOSORBIDE MONONITRATE
     Indication: Product used for unknown indication
     Dosage: UNK
  6. actenolol [Concomitant]
     Indication: Product used for unknown indication
     Dosage: UNK
  7. Timida [Concomitant]
     Indication: Product used for unknown indication
     Dosage: 10 MILLIGRAM
  8. jardian [Concomitant]
     Indication: Product used for unknown indication
     Dosage: UNK
  9. trampexole [Concomitant]
     Indication: Product used for unknown indication
     Dosage: 0.25
  10. furosemide; [Concomitant]
     Indication: Product used for unknown indication
     Dosage: UNK
  11. TYLENOL [Concomitant]
     Active Substance: ACETAMINOPHEN
     Indication: Product used for unknown indication
     Dosage: UNK
  12. ASPIRIN [Concomitant]
     Active Substance: ASPIRIN
     Indication: Product used for unknown indication
     Dosage: UNK
  13. ROSUVASTATIN [Concomitant]
     Active Substance: ROSUVASTATIN
     Indication: Product used for unknown indication
     Dosage: UNK
  14. TOLTERODINE [Concomitant]
     Active Substance: TOLTERODINE
     Indication: Product used for unknown indication
     Dosage: UNK
  15. talmisartan; [Concomitant]
     Indication: Product used for unknown indication
     Dosage: UNK
  16. vyctosa [Concomitant]
     Indication: Product used for unknown indication
     Dosage: UNK
  17. PANTOPRAZOLE SODIUM [Concomitant]
     Active Substance: PANTOPRAZOLE SODIUM
     Indication: Product used for unknown indication
     Dosage: UNK
  18. INSULIN NOS [Concomitant]
     Active Substance: INSULIN NOS
     Indication: Product used for unknown indication
     Dosage: UNK

REACTIONS (10)
  - Urinary tract infection [Recovered/Resolved]
  - Bladder neoplasm surgery [Unknown]
  - Bladder catheterisation [Not Recovered/Not Resolved]
  - Pyelonephritis [Unknown]
  - Psoriasis [Recovering/Resolving]
  - Sepsis associated acute kidney injury [Not Recovered/Not Resolved]
  - Arteriovenous fistula operation [Unknown]
  - Tooth fracture [Unknown]
  - Pain [Unknown]
  - Therapeutic product effect incomplete [Unknown]
